FAERS Safety Report 7136367-3 (Version None)
Quarter: 2010Q4

REPORT INFORMATION
  Report Type: 
  Country: None (occurrence: None)
  Receive Date: 20101206
  Receipt Date: 20101123
  Transmission Date: 20110411
  Serious: No
  Sender: FDA-Public Use
  Company Number: US-BIOGENIDEC-2010BI041961

PATIENT
  Sex: Female

DRUGS (2)
  1. TYSABRI [Suspect]
     Indication: MULTIPLE SCLEROSIS
     Route: 042
     Dates: start: 20101006
  2. AMPYRA [Concomitant]
     Indication: BALANCE DISORDER
     Dates: start: 20101001

REACTIONS (6)
  - BALANCE DISORDER [None]
  - BLADDER DISORDER [None]
  - COGNITIVE DISORDER [None]
  - COORDINATION ABNORMAL [None]
  - JOINT SWELLING [None]
  - NUCLEAR MAGNETIC RESONANCE IMAGING ABNORMAL [None]
